FAERS Safety Report 12601546 (Version 1)
Quarter: 2016Q3

REPORT INFORMATION
  Report Type: Spontaneous
  Country: CA (occurrence: CA)
  Receive Date: 20160728
  Receipt Date: 20160728
  Transmission Date: 20161109
  Serious: Yes (Death, Other)
  Sender: FDA-Public Use
  Company Number: CA-JAZZ-2015-CA-022933

PATIENT

DRUGS (18)
  1. METHOTREXATE. [Suspect]
     Active Substance: METHOTREXATE
     Indication: ACUTE LYMPHOCYTIC LEUKAEMIA
     Dosage: 12 MG, UNK
     Route: 037
  2. VINCRISTINE SULFATE. [Suspect]
     Active Substance: VINCRISTINE SULFATE
     Indication: ACUTE LYMPHOCYTIC LEUKAEMIA
     Dosage: 2 MG, UNK
     Route: 042
  3. DOXORUBICIN HYDROCHLORIDE. [Suspect]
     Active Substance: DOXORUBICIN HYDROCHLORIDE
     Indication: ACUTE LYMPHOCYTIC LEUKAEMIA
     Dosage: 30 MG/M2, UNK
     Route: 042
  4. DOXORUBICIN HYDROCHLORIDE. [Suspect]
     Active Substance: DOXORUBICIN HYDROCHLORIDE
     Indication: OFF LABEL USE
  5. HYDROCORTISONE. [Suspect]
     Active Substance: HYDROCORTISONE
     Indication: CHROMOSOME ANALYSIS ABNORMAL
     Dosage: UNK
     Route: 065
  6. METHOTREXATE. [Suspect]
     Active Substance: METHOTREXATE
     Indication: CHROMOSOME ANALYSIS ABNORMAL
     Dosage: 4000 MG/M2, UNK
     Route: 042
  7. METHOTREXATE. [Suspect]
     Active Substance: METHOTREXATE
     Dosage: UNK
     Route: 065
  8. PREDNISONE. [Suspect]
     Active Substance: PREDNISONE
     Indication: ACUTE LYMPHOCYTIC LEUKAEMIA
     Dosage: 10 MG/M2, QID
     Route: 048
  9. DOXORUBICIN HYDROCHLORIDE. [Suspect]
     Active Substance: DOXORUBICIN HYDROCHLORIDE
     Indication: CHROMOSOME ANALYSIS ABNORMAL
     Dosage: 30 MG/M2, UNK
     Route: 065
  10. HYDROCORTISONE. [Suspect]
     Active Substance: HYDROCORTISONE
     Indication: ACUTE LYMPHOCYTIC LEUKAEMIA
     Dosage: 15 MG, 1 EVERY 18 WEEKS
     Route: 037
  11. ASPARAGINASE [Suspect]
     Active Substance: ASPARAGINASE
     Indication: ACUTE LYMPHOCYTIC LEUKAEMIA
     Dosage: 25000 OTHER, UNK
     Route: 030
  12. ASPARAGINASE [Suspect]
     Active Substance: ASPARAGINASE
     Indication: CHROMOSOME ANALYSIS ABNORMAL
     Dosage: UNK
     Route: 065
  13. CYTARABINE. [Suspect]
     Active Substance: CYTARABINE
     Indication: CHROMOSOME ANALYSIS ABNORMAL
     Dosage: UNK
     Route: 065
  14. GLEEVEC [Suspect]
     Active Substance: IMATINIB MESYLATE
     Indication: ACUTE LYMPHOCYTIC LEUKAEMIA
     Dosage: 400 MG/M2, QD
     Route: 048
  15. GLEEVEC [Suspect]
     Active Substance: IMATINIB MESYLATE
     Indication: CHROMOSOME ANALYSIS ABNORMAL
     Dosage: 400 MG/M2, UNK
     Route: 065
  16. PREDNISONE. [Suspect]
     Active Substance: PREDNISONE
     Indication: CHROMOSOME ANALYSIS ABNORMAL
     Dosage: 10 MG/M2, QID
     Route: 065
  17. CYTARABINE. [Suspect]
     Active Substance: CYTARABINE
     Indication: ACUTE LYMPHOCYTIC LEUKAEMIA
     Dosage: 40 MG, UNK
     Route: 037
  18. VINCRISTINE SULFATE. [Suspect]
     Active Substance: VINCRISTINE SULFATE
     Indication: CHROMOSOME ANALYSIS ABNORMAL
     Dosage: 2 MG, UNK
     Route: 065

REACTIONS (1)
  - Malignant neoplasm progression [Fatal]
